FAERS Safety Report 20617126 (Version 1)
Quarter: 2022Q1

REPORT INFORMATION
  Report Type: Spontaneous
  Country: US (occurrence: None)
  Receive Date: 20220321
  Receipt Date: 20220321
  Transmission Date: 20220424
  Serious: Yes (Hospitalization)
  Sender: FDA-Public Use
  Company Number: None

PATIENT
  Age: 68 Year
  Sex: Male
  Weight: 102.97 kg

DRUGS (14)
  1. ERLEADA [Suspect]
     Active Substance: APALUTAMIDE
     Indication: Prostate cancer
     Dosage: FREQUENCY : DAILY;?
     Route: 048
  2. CALCIUM [Concomitant]
  3. EFFEXOR XR [Concomitant]
  4. ELIGARD [Concomitant]
  5. ENALAPRIL [Concomitant]
  6. HYDROXYZINE HYDROCHLORIDE [Concomitant]
     Active Substance: HYDROXYZINE HYDROCHLORIDE
  7. LUNESTA [Concomitant]
  8. METOPROLOL SUCCINATE [Concomitant]
  9. ONDANSETRON ORAL [Concomitant]
  10. PERCOCET [Concomitant]
  11. PROCHLORPERAZINE [Concomitant]
  12. ROSUVASTATIN [Concomitant]
  13. ASPIRIN [Concomitant]
  14. XGEVA [Concomitant]

REACTIONS (1)
  - Hospitalisation [None]
